FAERS Safety Report 12088983 (Version 36)
Quarter: 2021Q4

REPORT INFORMATION
  Report Type: Report from Study
  Country: CA (occurrence: CA)
  Receive Date: 20160218
  Receipt Date: 20211022
  Transmission Date: 20220304
  Serious: Yes (Hospitalization, Other)
  Sender: FDA-Public Use
  Company Number: PHHY2014CA083699

PATIENT
  Age: 50 Year
  Sex: Male

DRUGS (5)
  1. SANDOSTATIN LAR DEPOT [Suspect]
     Active Substance: OCTREOTIDE ACETATE
     Indication: Neuroendocrine carcinoma
     Dosage: 30 MG, Q4W (EVERY 4 WEEKS)
     Route: 030
     Dates: start: 20120701
  2. SANDOSTATIN LAR DEPOT [Suspect]
     Active Substance: OCTREOTIDE ACETATE
  3. SANDOSTATIN LAR DEPOT [Suspect]
     Active Substance: OCTREOTIDE ACETATE
  4. DALTEPARIN [Suspect]
     Active Substance: DALTEPARIN
     Indication: Product used for unknown indication
     Dosage: UNK
     Route: 065
  5. VALSARTAN [Concomitant]
     Active Substance: VALSARTAN
     Indication: Product used for unknown indication
     Dosage: 80 MG, QD
     Route: 065
     Dates: start: 20170215

REACTIONS (21)
  - Vertigo positional [Unknown]
  - Abscess [Unknown]
  - Ileus [Recovered/Resolved]
  - Intestinal perforation [Recovering/Resolving]
  - Thrombosis [Unknown]
  - Blood pressure increased [Unknown]
  - Nephrolithiasis [Unknown]
  - Lower respiratory tract infection [Unknown]
  - Metastases to liver [Unknown]
  - Neuroendocrine tumour [Unknown]
  - Ear infection [Unknown]
  - Sinusitis [Unknown]
  - Stress [Unknown]
  - Insomnia [Unknown]
  - Heart rate decreased [Unknown]
  - Blood pressure systolic increased [Unknown]
  - Blood pressure diastolic decreased [Unknown]
  - Oral disorder [Unknown]
  - Body temperature decreased [Unknown]
  - Weight decreased [Unknown]
  - Fatigue [Unknown]

NARRATIVE: CASE EVENT DATE: 20140606
